FAERS Safety Report 18223528 (Version 1)
Quarter: 2020Q3

REPORT INFORMATION
  Report Type: Spontaneous
  Country: AU (occurrence: AU)
  Receive Date: 20200902
  Receipt Date: 20200902
  Transmission Date: 20201103
  Serious: Yes (Life-Threatening, Other)
  Sender: FDA-Public Use
  Company Number: AU-PFIZER INC-2020304525

PATIENT
  Age: 54 Year
  Sex: Female
  Weight: 175 kg

DRUGS (4)
  1. DBL VANCOMYCIN [Suspect]
     Active Substance: VANCOMYCIN HYDROCHLORIDE
     Indication: CELLULITIS
  2. CEFEPIME AFT [Concomitant]
     Indication: OSTEOMYELITIS
     Dosage: 2 G, 2X/DAY
     Route: 042
     Dates: start: 20200713, end: 20200715
  3. DBL VANCOMYCIN [Suspect]
     Active Substance: VANCOMYCIN HYDROCHLORIDE
     Indication: OSTEOMYELITIS
     Dosage: 2 G, DAILY
     Route: 042
     Dates: start: 20200714, end: 20200717
  4. CEFEPIME AFT [Concomitant]
     Indication: CELLULITIS

REACTIONS (3)
  - Nephropathy toxic [Unknown]
  - Drug level increased [Unknown]
  - Acute kidney injury [Recovered/Resolved with Sequelae]

NARRATIVE: CASE EVENT DATE: 202007
